FAERS Safety Report 7227070-X (Version None)
Quarter: 2011Q1

REPORT INFORMATION
  Report Type: 
  Country: None (occurrence: None)
  Receive Date: 20110105
  Receipt Date: 20101220
  Transmission Date: 20110831
  Serious: Yes (Hospitalization)
  Sender: FDA-Public Use
  Company Number: WAES 1012USA03436

PATIENT
  Age: 65 Year
  Sex: Female

DRUGS (8)
  1. FRAXODI [Concomitant]
  2. CAP VORINOSTAT [Suspect]
     Indication: MULTIPLE MYELOMA
     Dosage: 300 MG/DAILY PO
     Route: 048
     Dates: start: 20100426, end: 20101220
  3. NOVALGIN [Concomitant]
  4. MAGNESIUM (UNSPECIFIED) [Concomitant]
  5. DECADRON [Suspect]
     Indication: MULTIPLE MYELOMA
     Dosage: 20 MG/ PO
     Route: 048
     Dates: start: 20100503, end: 20101216
  6. CIPROFLOXACIN HYDROCHLORIDE [Concomitant]
  7. BORTEZOMIB [Suspect]
     Indication: MULTIPLE MYELOMA
     Dosage: 1.75 MG/ IV
     Route: 042
     Dates: start: 20100426, end: 20101216
  8. BLOOD CELLS, RED [Concomitant]

REACTIONS (1)
  - SEPSIS [None]
